FAERS Safety Report 10135362 (Version 1)
Quarter: 2014Q2

REPORT INFORMATION
  Report Type: Spontaneous
  Country: GB (occurrence: GB)
  Receive Date: 20140428
  Receipt Date: 20140428
  Transmission Date: 20141212
  Serious: Yes (Hospitalization)
  Sender: FDA-Public Use
  Company Number: GB-ABBVIE-14P-167-1227816-00

PATIENT
  Age: 65 Year
  Sex: Female

DRUGS (2)
  1. HUMIRA [Suspect]
     Indication: PSORIATIC ARTHROPATHY
     Route: 058
     Dates: start: 2009, end: 20140202
  2. METHOTREXATE [Suspect]
     Indication: PSORIATIC ARTHROPATHY
     Dosage: CUMULATIVE DOSE TO FIRST REACTION 2061.42857 MILLIGRAM
     Route: 048
     Dates: start: 20081111, end: 20140205

REACTIONS (4)
  - Secretion discharge [Unknown]
  - Peritonitis [Recovered/Resolved]
  - Abdominal pain [Unknown]
  - Beta haemolytic streptococcal infection [Recovered/Resolved]
